FAERS Safety Report 14537862 (Version 3)
Quarter: 2018Q1

REPORT INFORMATION
  Report Type: Report from Study
  Country: US (occurrence: US)
  Receive Date: 20180216
  Receipt Date: 20180228
  Transmission Date: 20180509
  Serious: No
  Sender: FDA-Public Use
  Company Number: PHEH2018US006262

PATIENT
  Sex: Female

DRUGS (1)
  1. OMNITROPE [Suspect]
     Active Substance: SOMATROPIN
     Indication: PRODUCT USED FOR UNKNOWN INDICATION
     Dosage: QD
     Route: 058

REACTIONS (7)
  - Injection site swelling [Unknown]
  - Needle issue [Unknown]
  - Product storage error [Unknown]
  - Injection site pain [Unknown]
  - Device malfunction [Unknown]
  - Scratch [Unknown]
  - Crying [Unknown]
